FAERS Safety Report 25626354 (Version 1)
Quarter: 2025Q3

REPORT INFORMATION
  Report Type: Spontaneous
  Country: EU (occurrence: EU)
  Receive Date: 20250731
  Receipt Date: 20250731
  Transmission Date: 20251020
  Serious: Yes (Other)
  Sender: RANBAXY
  Company Number: EU-CADRBFARM-2025335579

PATIENT
  Age: 57 Year
  Sex: Male
  Weight: 70 kg

DRUGS (2)
  1. RIVAROXABAN [Suspect]
     Active Substance: RIVAROXABAN
     Indication: Pulmonary embolism
     Dosage: 20 MILLIGRAM, DAILY
     Route: 048
     Dates: start: 20250101, end: 20250325
  2. RIVAROXABAN [Suspect]
     Active Substance: RIVAROXABAN
     Indication: Factor V Leiden mutation

REACTIONS (3)
  - Alanine aminotransferase increased [Recovering/Resolving]
  - Aspartate aminotransferase increased [Recovering/Resolving]
  - General physical condition abnormal [Unknown]

NARRATIVE: CASE EVENT DATE: 20250320
